FAERS Safety Report 23315318 (Version 1)
Quarter: 2023Q4

REPORT INFORMATION
  Report Type: Spontaneous
  Country: US (occurrence: None)
  Receive Date: 20231218
  Receipt Date: 20231218
  Transmission Date: 20240110
  Serious: Yes (Hospitalization)
  Sender: FDA-Public Use
  Company Number: None

PATIENT
  Sex: Male

DRUGS (27)
  1. TACROLIMUS [Suspect]
     Active Substance: TACROLIMUS
     Indication: Graft versus host disease
     Dosage: FREQUENCY : EVERY 12 HOURS;?
     Route: 048
     Dates: start: 20231027
  2. ACYCLOVIR [Concomitant]
     Active Substance: ACYCLOVIR
  3. ATENOLOL [Concomitant]
     Active Substance: ATENOLOL
  4. AZACITIDINE [Concomitant]
     Active Substance: AZACITIDINE
  5. CLOBETASOL [Concomitant]
     Active Substance: CLOBETASOL
  6. GRANISETRON [Concomitant]
     Active Substance: GRANISETRON
  7. LEVOTHYROXINE [Concomitant]
     Active Substance: LEVOTHYROXINE
  8. LORATADINE [Concomitant]
     Active Substance: LORATADINE
  9. MAGNESIUM [Concomitant]
     Active Substance: MAGNESIUM
  10. MAGNESIUM SU [Concomitant]
  11. MEDROL [Concomitant]
     Active Substance: METHYLPREDNISOLONE
  12. METHYLPREDNISOLONE [Concomitant]
     Active Substance: METHYLPREDNISOLONE
  13. VITAMINS [Concomitant]
     Active Substance: VITAMINS
  14. NICOTINE TD DIS [Concomitant]
  15. NIVESTYM [Concomitant]
     Active Substance: FILGRASTIM-AAFI
  16. NOVOLOG [Concomitant]
     Active Substance: INSULIN ASPART
  17. ONDANSETRON [Concomitant]
     Active Substance: ONDANSETRON
  18. OXYCODONE [Concomitant]
     Active Substance: OXYCODONE
  19. PANTOPRAZOLE [Concomitant]
     Active Substance: PANTOPRAZOLE
  20. PENTAMIDINE [Concomitant]
     Active Substance: PENTAMIDINE
  21. POSACONAZOLE [Concomitant]
     Active Substance: POSACONAZOLE
  22. POT CL MICRO [Concomitant]
  23. PREVYMIS [Concomitant]
     Active Substance: LETERMOVIR
  24. RETACRIT [Concomitant]
     Active Substance: EPOETIN ALFA-EPBX
  25. ROPINIROLE [Concomitant]
     Active Substance: ROPINIROLE
  26. SINGULAIR [Concomitant]
     Active Substance: MONTELUKAST SODIUM
  27. URSODIOL [Concomitant]
     Active Substance: URSODIOL

REACTIONS (1)
  - Infection [None]
